FAERS Safety Report 4512962-2 (Version None)
Quarter: 2004Q4

REPORT INFORMATION
  Report Type: 
  Country: None (occurrence: None)
  Receive Date: 20041124
  Receipt Date: 20041115
  Transmission Date: 20050328
  Serious: Yes (Hospitalization)
  Sender: FDA-Public Use
  Company Number: 139644USA

PATIENT
  Sex: Male

DRUGS (1)
  1. AMIODARONE HCL [Suspect]
     Indication: ARRHYTHMIA
     Dosage: 400 MILLIGRAM BID ORAL
     Route: 048
     Dates: start: 20020617, end: 20030101

REACTIONS (4)
  - ASTHENIA [None]
  - LUNG DISORDER [None]
  - NAUSEA [None]
  - VOMITING [None]
